FAERS Safety Report 24104402 (Version 1)
Quarter: 2024Q3

REPORT INFORMATION
  Report Type: Spontaneous
  Country: US (occurrence: None)
  Receive Date: 20240715
  Receipt Date: 20240715
  Transmission Date: 20241017
  Serious: Yes (Hospitalization, Disabling)
  Sender: Public
  Company Number: None

PATIENT
  Age: 83 Year
  Sex: Female
  Weight: 56.7 kg

DRUGS (5)
  1. BACLOFEN [Suspect]
     Active Substance: BACLOFEN
  2. ALPRAZOLAM [Concomitant]
     Active Substance: ALPRAZOLAM
  3. MAGNESIUM GLYCINATE [Concomitant]
     Active Substance: MAGNESIUM GLYCINATE
  4. B VITAMINS W.O. B6 [Concomitant]
  5. 1 A DAY W VIT D [Concomitant]

REACTIONS (21)
  - Contraindicated product administered [None]
  - Product communication issue [None]
  - Paraesthesia [None]
  - Insomnia [None]
  - Pain [None]
  - Post procedural complication [None]
  - Adverse drug reaction [None]
  - Weight bearing difficulty [None]
  - Arthralgia [None]
  - Dental caries [None]
  - Dry mouth [None]
  - Neurological symptom [None]
  - Decreased appetite [None]
  - Weight decreased [None]
  - Immobile [None]
  - Bone loss [None]
  - Cartilage atrophy [None]
  - Ligament sprain [None]
  - Eye irritation [None]
  - Visual impairment [None]
  - Emotional distress [None]

NARRATIVE: CASE EVENT DATE: 20231127
